FAERS Safety Report 20890619 (Version 1)
Quarter: 2022Q2

REPORT INFORMATION
  Report Type: Spontaneous
  Country: PL (occurrence: PL)
  Receive Date: 20220530
  Receipt Date: 20220530
  Transmission Date: 20220721
  Serious: Yes (Other)
  Sender: FDA-Public Use
  Company Number: PL-LEADINGPHARMA-PL-2022LEALIT00072

PATIENT
  Age: 15 Year
  Sex: Female

DRUGS (1)
  1. LIDOCAINE [Suspect]
     Active Substance: LIDOCAINE
     Route: 065

REACTIONS (3)
  - Memory impairment [Unknown]
  - Vomiting [Unknown]
  - Genital pain [Unknown]
